FAERS Safety Report 6465219-7 (Version None)
Quarter: 2009Q4

REPORT INFORMATION
  Report Type: 
  Country: None (occurrence: None)
  Receive Date: 20091124
  Receipt Date: 20091115
  Transmission Date: 20100525
  Serious: Yes (Other)
  Sender: FDA-Public Use
  Company Number: GB-DEXPHARM-20091973

PATIENT
  Age: 76 Year
  Sex: Female
  Weight: 66.3 kg

DRUGS (1)
  1. OMEPRAZOLE [Suspect]
     Route: 048
     Dates: start: 20081001, end: 20090115

REACTIONS (1)
  - TUBULOINTERSTITIAL NEPHRITIS [None]
